FAERS Safety Report 7570016-5 (Version None)
Quarter: 2011Q2

REPORT INFORMATION
  Report Type: 
  Country: None (occurrence: None)
  Receive Date: 20110622
  Receipt Date: 20110622
  Transmission Date: 20111010
  Serious: Yes (Life-Threatening, Hospitalization, Other)
  Sender: FDA-Public Use
  Company Number: None

PATIENT
  Age: 60 Year
  Sex: Male
  Weight: 95.709 kg

DRUGS (1)
  1. DEPAKENE [Suspect]
     Indication: HYPERAMMONAEMIA
     Dosage: 1000MG QID PO
     Route: 048
     Dates: start: 19850301, end: 20101012

REACTIONS (2)
  - CEREBRAL ATROPHY [None]
  - ACIDOSIS [None]
